FAERS Safety Report 5097923-X (Version None)
Quarter: 2006Q3

REPORT INFORMATION
  Report Type: 
  Country: None (occurrence: None)
  Receive Date: 20060905
  Receipt Date: 20060905
  Transmission Date: 20061208
  Serious: No
  Sender: FDA-Public Use
  Company Number: None

PATIENT
  Age: 39 Year
  Sex: Male
  Weight: 95.2554 kg

DRUGS (1)
  1. ZICAM ALLERGY RELIEF ZICAM [Suspect]
     Indication: NASOPHARYNGITIS
     Dates: start: 20050101, end: 20050201

REACTIONS (2)
  - AGEUSIA [None]
  - ANOSMIA [None]
